FAERS Safety Report 21567881 (Version 2)
Quarter: 2022Q4

REPORT INFORMATION
  Report Type: Report from Study
  Country: DE (occurrence: DE)
  Receive Date: 20221108
  Receipt Date: 20221111
  Transmission Date: 20230112
  Serious: Yes (Hospitalization)
  Sender: FDA-Public Use
  Company Number: DE-ABBVIE-4191300

PATIENT
  Sex: Female

DRUGS (1)
  1. HUMIRA [Suspect]
     Active Substance: ADALIMUMAB
     Indication: Hidradenitis
     Dosage: FORM STRENGTH 40MG
     Route: 058
     Dates: start: 20170918

REACTIONS (1)
  - Acne [Recovered/Resolved]

NARRATIVE: CASE EVENT DATE: 20220505
